FAERS Safety Report 9008751 (Version 2)
Quarter: 2013Q1

REPORT INFORMATION
  Report Type: Spontaneous
  Country: FR (occurrence: FR)
  Receive Date: 20130111
  Receipt Date: 20130324
  Transmission Date: 20140127
  Serious: Yes (Life-Threatening)
  Sender: FDA-Public Use
  Company Number: FR-ROCHE-1177759

PATIENT
  Age: 8 Month
  Sex: Female

DRUGS (4)
  1. RIVOTRIL [Suspect]
     Indication: DYSTONIA
     Route: 048
     Dates: end: 20121213
  2. ARTANE [Suspect]
     Indication: DYSTONIA
     Route: 048
     Dates: start: 20120821
  3. LAROXYL [Suspect]
     Indication: DYSTONIA
     Route: 048
     Dates: start: 20121207, end: 20121213
  4. SINEMET [Suspect]
     Indication: DYSTONIA
     Route: 048
     Dates: start: 20121211, end: 20121213

REACTIONS (1)
  - Serotonin syndrome [Recovered/Resolved]
